FAERS Safety Report 17520595 (Version 1)
Quarter: 2020Q1

REPORT INFORMATION
  Report Type: Spontaneous
  Country: US (occurrence: US)
  Receive Date: 20200309
  Receipt Date: 20200309
  Transmission Date: 20200409
  Serious: No
  Sender: FDA-Public Use
  Company Number: US-ASTRAZENECA-2020SE28019

PATIENT
  Age: 865 Month
  Sex: Female
  Weight: 61.2 kg

DRUGS (17)
  1. VITAMIN B12 [Concomitant]
     Active Substance: CYANOCOBALAMIN
  2. DALIRESP [Suspect]
     Active Substance: ROFLUMILAST
     Indication: NASAL CONGESTION
     Route: 048
  3. PAROXETINE. [Concomitant]
     Active Substance: PAROXETINE
     Indication: DEPRESSION
     Route: 065
  4. ALPRAZOLAM. [Concomitant]
     Active Substance: ALPRAZOLAM
     Indication: DEPRESSION
     Dosage: 0.5MG TWO TABS DAILY
     Route: 065
  5. DALIRESP [Suspect]
     Active Substance: ROFLUMILAST
     Indication: DYSPNOEA
     Route: 048
  6. LISINOPRIL HCTZ [Concomitant]
     Active Substance: HYDROCHLOROTHIAZIDE\LISINOPRIL
     Indication: HYPERTENSION
     Dosage: 12.5 MG TWO TABS DAILY
     Route: 065
     Dates: start: 2012
  7. VITAMINS OTC [Concomitant]
  8. DALIRESP [Suspect]
     Active Substance: ROFLUMILAST
     Indication: CHRONIC OBSTRUCTIVE PULMONARY DISEASE
     Route: 048
     Dates: start: 20200219
  9. DALIRESP [Suspect]
     Active Substance: ROFLUMILAST
     Indication: NASAL CONGESTION
     Route: 048
     Dates: start: 20200219
  10. DALIRESP [Suspect]
     Active Substance: ROFLUMILAST
     Indication: EMPHYSEMA
     Route: 048
     Dates: start: 20200219
  11. DALIRESP [Suspect]
     Active Substance: ROFLUMILAST
     Indication: EMPHYSEMA
     Route: 048
  12. CRANBERRY SUPPLIMENT [Concomitant]
  13. DILTIZEM ER [Concomitant]
     Indication: BLOOD PRESSURE MEASUREMENT
     Route: 065
  14. HYDROCODONE BITARTRATE AND ACETAMINOPHEN [Concomitant]
     Active Substance: ACETAMINOPHEN\HYDROCODONE BITARTRATE
     Indication: PAIN
     Dosage: 5-325 MG. 1/2 TABLET EVERY DAY
  15. DALIRESP [Suspect]
     Active Substance: ROFLUMILAST
     Indication: DYSPNOEA
     Route: 048
     Dates: start: 20200219
  16. METHIMAZOLE. [Concomitant]
     Active Substance: METHIMAZOLE
     Indication: THYROID DISORDER
     Route: 065
  17. DALIRESP [Suspect]
     Active Substance: ROFLUMILAST
     Indication: CHRONIC OBSTRUCTIVE PULMONARY DISEASE
     Route: 048

REACTIONS (8)
  - Pain [Unknown]
  - Diarrhoea [Not Recovered/Not Resolved]
  - Dizziness [Recovered/Resolved]
  - Nausea [Recovered/Resolved]
  - Burning sensation [Unknown]
  - Influenza [Unknown]
  - Decreased appetite [Not Recovered/Not Resolved]
  - Headache [Not Recovered/Not Resolved]

NARRATIVE: CASE EVENT DATE: 202002
